FAERS Safety Report 21742105 (Version 1)
Quarter: 2022Q4

REPORT INFORMATION
  Report Type: Report from Study
  Country: US (occurrence: US)
  Receive Date: 20221216
  Receipt Date: 20221216
  Transmission Date: 20230113
  Serious: No
  Sender: FDA-Public Use
  Company Number: US-ABBVIE-4177803

PATIENT
  Sex: Female

DRUGS (3)
  1. HUMIRA [Suspect]
     Active Substance: ADALIMUMAB
     Indication: Product used for unknown indication
     Dosage: ONE EVERY TWO WEEK?CF
     Route: 058
  2. HUMIRA [Suspect]
     Active Substance: ADALIMUMAB
     Dosage: ONE EVERY WEEK?DOSE INCREASED
     Route: 058
  3. HUMIRA [Suspect]
     Active Substance: ADALIMUMAB
     Dosage: ONE EVERY OTHER WEEK?DOSE DECREASED
     Route: 058

REACTIONS (4)
  - Intestinal mass [Not Recovered/Not Resolved]
  - Drug level abnormal [Recovered/Resolved]
  - Peripheral swelling [Recovered/Resolved]
  - Limb discomfort [Recovered/Resolved]
